FAERS Safety Report 23481092 (Version 1)
Quarter: 2024Q1

REPORT INFORMATION
  Report Type: Spontaneous
  Country: US (occurrence: None)
  Receive Date: 20240202
  Receipt Date: 20240202
  Transmission Date: 20240410
  Serious: Yes (Disabling)
  Sender: FDA-Public Use
  Company Number: None

PATIENT
  Age: 41 Year
  Sex: Male
  Weight: 69.3 kg

DRUGS (1)
  1. CIPRO [Suspect]
     Active Substance: CIPROFLOXACIN HYDROCHLORIDE
     Dates: start: 20231006, end: 20231020

REACTIONS (4)
  - Tendon disorder [None]
  - Muscle disorder [None]
  - Nervous system disorder [None]
  - Sjogren^s syndrome [None]

NARRATIVE: CASE EVENT DATE: 20240115
